FAERS Safety Report 19742754 (Version 2)
Quarter: 2021Q3

REPORT INFORMATION
  Report Type: Report from Study
  Country: JP (occurrence: JP)
  Receive Date: 20210825
  Receipt Date: 20210906
  Transmission Date: 20211014
  Serious: Yes (Hospitalization)
  Sender: FDA-Public Use
  Company Number: JP-SA-2021SA276705

PATIENT
  Age: 87 Year
  Sex: Female
  Weight: 56 kg

DRUGS (10)
  1. NEXIUM 1?2?3 [Concomitant]
     Active Substance: AMOXICILLIN\CLARITHROMYCIN\ESOMEPRAZOLE
     Indication: PROPHYLAXIS
     Dosage: 1 C (20 MG), QD
     Route: 048
  2. METHOTREXATE. [Concomitant]
     Active Substance: METHOTREXATE
     Indication: RHEUMATOID ARTHRITIS
     Dosage: 2 T (4 MG), QW
     Route: 048
  3. FOLIAMIN [FOLIC ACID] [Concomitant]
     Active Substance: FOLIC ACID
     Indication: PROPHYLAXIS
     Dosage: 1 DF (5 MG), QW
     Route: 048
  4. ALFACALCIDOL [Concomitant]
     Active Substance: ALFACALCIDOL
     Indication: OSTEOPOROSIS
     Dosage: 2 T (1 UG), QD
     Route: 048
  5. ALENDRONATE [Concomitant]
     Active Substance: ALENDRONATE SODIUM
     Indication: OSTEOPOROSIS
     Dosage: 1 T (35 MG), QW
     Route: 048
  6. ROSUVASTATIN OD [Concomitant]
     Indication: DYSLIPIDAEMIA
     Dosage: 1 T (2.5 MG), QD
     Route: 048
  7. LIXIANA OD [Concomitant]
     Active Substance: EDOXABAN TOSYLATE
     Indication: DEEP VEIN THROMBOSIS
     Dosage: 1 T (15 MG), QD
     Route: 048
  8. PREDNISOLONE. [Concomitant]
     Active Substance: PREDNISOLONE
     Indication: RHEUMATOID ARTHRITIS
     Dosage: 2 T (2 MG), QD
     Route: 048
  9. SARILUMAB [Suspect]
     Active Substance: SARILUMAB
     Indication: RHEUMATOID ARTHRITIS
     Dosage: 200 MG, QOW
     Route: 058
     Dates: start: 20210205
  10. LOXOPROFEN NA [Concomitant]
     Active Substance: LOXOPROFEN SODIUM
     Indication: RHEUMATOID ARTHRITIS
     Dosage: 100 MG, PRN
     Route: 062

REACTIONS (3)
  - Fall [Unknown]
  - Haemorrhoidal haemorrhage [Recovered/Resolved]
  - Spinal compression fracture [Recovered/Resolved]

NARRATIVE: CASE EVENT DATE: 20210608
